FAERS Safety Report 5155185-9 (Version None)
Quarter: 2006Q4

REPORT INFORMATION
  Report Type: 
  Country: None (occurrence: None)
  Receive Date: 20061121
  Receipt Date: 20061114
  Transmission Date: 20070319
  Serious: Yes (Other)
  Sender: FDA-Public Use
  Company Number: US-JNJFOC-20061103715

PATIENT
  Sex: Female
  Weight: 60.78 kg

DRUGS (11)
  1. DURAGESIC-100 [Suspect]
     Indication: SPINAL FUSION SURGERY
     Route: 062
  2. FENTANYL TRANSDERMAL SYSTEM [Suspect]
     Route: 062
  3. FENTANYL TRANSDERMAL SYSTEM [Suspect]
     Route: 062
  4. FENTANYL TRANSDERMAL SYSTEM [Suspect]
     Route: 062
  5. FENTANYL TRANSDERMAL SYSTEM [Suspect]
     Indication: SPINAL FRACTURE
     Route: 062
  6. XANAX [Concomitant]
     Indication: ANXIETY
     Route: 048
  7. RESTORIL [Concomitant]
     Indication: SLEEP DISORDER
     Route: 048
  8. UNKNOWN [Concomitant]
     Indication: MIGRAINE
     Route: 048
  9. IMITREX [Concomitant]
     Indication: MIGRAINE
     Route: 048
  10. PERCOCET [Concomitant]
     Indication: PAIN
     Route: 048
  11. TYLENOL W/ CODEINE [Concomitant]
     Route: 048

REACTIONS (2)
  - DYSSTASIA [None]
  - MUSCULOSKELETAL STIFFNESS [None]
